FAERS Safety Report 10228660 (Version 2)
Quarter: 2014Q2

REPORT INFORMATION
  Report Type: Spontaneous
  Country: US (occurrence: US)
  Receive Date: 20140610
  Receipt Date: 20140610
  Transmission Date: 20141212
  Serious: Yes (Other)
  Sender: FDA-Public Use
  Company Number: CHPA2014US005365

PATIENT
  Age: 52 Year
  Sex: Male

DRUGS (1)
  1. EX-LAX MAX STR LAX PILLS SENNA [Suspect]
     Indication: CONSTIPATION
     Dosage: 2 DF, QD
     Route: 048
     Dates: end: 20140414

REACTIONS (2)
  - Drug dependence [Unknown]
  - Incorrect drug administration duration [Unknown]
